FAERS Safety Report 6155504-0 (Version None)
Quarter: 2009Q2

REPORT INFORMATION
  Report Type: 
  Country: None (occurrence: None)
  Receive Date: 20090415
  Receipt Date: 20090407
  Transmission Date: 20091009
  Serious: Yes (Other)
  Sender: FDA-Public Use
  Company Number: GR-TYCO HEALTHCARE/MALLINCKRODT-T200900770

PATIENT

DRUGS (5)
  1. OPTIRAY 300 [Suspect]
     Indication: COMPUTERISED TOMOGRAM
     Dosage: 100 ML, SINGLE
     Route: 042
     Dates: start: 20090326, end: 20090326
  2. MEDROL [Suspect]
     Indication: RASH
     Dosage: UNK
     Dates: start: 20090326, end: 20090328
  3. MEDROL [Suspect]
     Indication: APHONIA
  4. ZYRTEC [Suspect]
     Indication: RASH
     Dosage: UNK
     Dates: start: 20090326, end: 20090328
  5. ZYRTEC [Suspect]
     Indication: APHONIA

REACTIONS (5)
  - APHONIA [None]
  - ASTHENIA [None]
  - EYELID OEDEMA [None]
  - MOOD ALTERED [None]
  - RASH [None]
